FAERS Safety Report 11426336 (Version 1)
Quarter: 2015Q3

REPORT INFORMATION
  Report Type: Spontaneous
  Country: US (occurrence: US)
  Receive Date: 20150821
  Receipt Date: 20150821
  Transmission Date: 20151125
  Serious: No
  Sender: FDA-Public Use
  Company Number: US-ELI_LILLY_AND_COMPANY-US201304005011

PATIENT
  Age: 57 Year
  Sex: Female
  Weight: 57.14 kg

DRUGS (3)
  1. NITROBID [Concomitant]
     Indication: SCLERODERMA
     Dosage: UNK, PRN
     Route: 061
  2. ADCIRCA [Suspect]
     Active Substance: TADALAFIL
     Dosage: 20 MG, QD
     Dates: start: 20130424
  3. ADCIRCA [Suspect]
     Active Substance: TADALAFIL
     Indication: PULMONARY HYPERTENSION
     Dosage: 20 MG, QD
     Dates: start: 20130411, end: 20130417

REACTIONS (5)
  - Dizziness [Recovered/Resolved]
  - Joint swelling [Unknown]
  - Headache [Recovered/Resolved]
  - Nausea [Recovered/Resolved]
  - Rash [Unknown]

NARRATIVE: CASE EVENT DATE: 20130417
